FAERS Safety Report 16161752 (Version 1)
Quarter: 2019Q2

REPORT INFORMATION
  Report Type: Spontaneous
  Country: US (occurrence: US)
  Receive Date: 20190405
  Receipt Date: 20190405
  Transmission Date: 20190711
  Serious: No
  Sender: FDA-Public Use
  Company Number: US-PFIZER INC-2019139855

PATIENT
  Sex: Male
  Weight: 127 kg

DRUGS (1)
  1. GABAPENTIN. [Suspect]
     Active Substance: GABAPENTIN
     Indication: NEUROPATHY PERIPHERAL
     Dosage: 300 MG, 2X/DAY (TAKE ONE CAPSULE IN THE MORNING AND ONE WITH DINNER)
     Route: 048
     Dates: start: 2013, end: 2019

REACTIONS (5)
  - Balance disorder [Unknown]
  - Drug ineffective for unapproved indication [Unknown]
  - Visual impairment [Unknown]
  - Insomnia [Unknown]
  - Hypersomnia [Unknown]
